FAERS Safety Report 18166505 (Version 1)
Quarter: 2020Q3

REPORT INFORMATION
  Report Type: Spontaneous
  Country: IE (occurrence: IE)
  Receive Date: 20200819
  Receipt Date: 20200819
  Transmission Date: 20201103
  Serious: Yes (Other)
  Sender: FDA-Public Use
  Company Number: IE-ADVANZ PHARMA-202008007871

PATIENT

DRUGS (4)
  1. GAMANIL [Concomitant]
     Indication: DEPRESSION
     Dosage: 3 DAILY (210MG IN TOTAL)
  2. PREDNISOLONE. [Suspect]
     Active Substance: PREDNISOLONE
     Indication: NEURALGIA
     Dosage: COMMENCED ON 6X5MG TABLETS FOR ONE WEEK, THEN REDUCE BY 1 TABLET EVERY 3 DAYS UNTIL COURSE COMPLETIO
     Route: 048
     Dates: start: 20200601
  3. OLANZAPINE (G) [Concomitant]
     Active Substance: OLANZAPINE
     Indication: DEPRESSION
     Dosage: 5MG DAILY
  4. SEROQUEL 100 MG FILM?COATED TABLETS [Concomitant]
     Indication: DEPRESSION

REACTIONS (14)
  - Depression [Not Recovered/Not Resolved]
  - Screaming [Not Recovered/Not Resolved]
  - Agitation [Not Recovered/Not Resolved]
  - Thinking abnormal [Not Recovered/Not Resolved]
  - Psychiatric symptom [Not Recovered/Not Resolved]
  - Speech disorder [Not Recovered/Not Resolved]
  - Anxiety [Not Recovered/Not Resolved]
  - Nervousness [Not Recovered/Not Resolved]
  - Loss of personal independence in daily activities [Not Recovered/Not Resolved]
  - Suicidal ideation [Not Recovered/Not Resolved]
  - Insomnia [Not Recovered/Not Resolved]
  - Asthenia [Not Recovered/Not Resolved]
  - Confusional state [Not Recovered/Not Resolved]
  - Feeling abnormal [Not Recovered/Not Resolved]
